FAERS Safety Report 17293157 (Version 2)
Quarter: 2020Q1

REPORT INFORMATION
  Report Type: Spontaneous
  Country: TR (occurrence: TR)
  Receive Date: 20200121
  Receipt Date: 20200304
  Transmission Date: 20200409
  Serious: Yes (Other)
  Sender: FDA-Public Use
  Company Number: NVSC2020TR012056

PATIENT
  Age: 42 Year
  Sex: Male

DRUGS (3)
  1. TRILEPTAL [Suspect]
     Active Substance: OXCARBAZEPINE
     Dosage: 600 MG, QHS
     Route: 065
  2. LEV-END [Concomitant]
     Indication: EPILEPSY
     Dosage: 1 DF (3X1)
     Route: 065
  3. TRILEPTAL [Suspect]
     Active Substance: OXCARBAZEPINE
     Indication: EPILEPSY
     Dosage: 300 MG IN THE MORNING
     Route: 065

REACTIONS (7)
  - Mouth haemorrhage [Recovering/Resolving]
  - Foaming at mouth [Recovering/Resolving]
  - Drug ineffective [Recovering/Resolving]
  - Bite [Recovering/Resolving]
  - Depression [Unknown]
  - Ill-defined disorder [Unknown]
  - Feeling abnormal [Unknown]
